FAERS Safety Report 5594433-8 (Version None)
Quarter: 2008Q1

REPORT INFORMATION
  Report Type: 
  Country: None (occurrence: None)
  Receive Date: 20080117
  Receipt Date: 20080109
  Transmission Date: 20080703
  Serious: Yes (Hospitalization)
  Sender: FDA-Public Use
  Company Number: JP-JNJFOC-20080102482

PATIENT
  Sex: Male

DRUGS (3)
  1. FINIBAX [Suspect]
     Indication: PNEUMONIA
     Route: 041
  2. TS-1 [Concomitant]
     Route: 048
  3. CFPM [Concomitant]
     Indication: PNEUMONIA
     Route: 065

REACTIONS (2)
  - EOSINOPHIL COUNT INCREASED [None]
  - PYREXIA [None]
